FAERS Safety Report 9750380 (Version 2)
Quarter: 2013Q4

REPORT INFORMATION
  Report Type: Spontaneous
  Country: US (occurrence: US)
  Receive Date: 20131212
  Receipt Date: 20131216
  Transmission Date: 20140711
  Serious: No
  Sender: FDA-Public Use
  Company Number: US-TEVA-395837USA

PATIENT
  Sex: Female

DRUGS (3)
  1. PARAGARD 380A [Suspect]
     Indication: CONTRACEPTION
     Route: 015
     Dates: start: 20130220, end: 20130401
  2. PROZAC [Concomitant]
     Dosage: 30 MILLIGRAM DAILY;
     Route: 048
  3. FLUOXETINE [Concomitant]
     Indication: ANXIETY
     Dosage: 20 MILLIGRAM DAILY;

REACTIONS (2)
  - Pelvic pain [Recovered/Resolved]
  - Menometrorrhagia [Recovered/Resolved]
